FAERS Safety Report 4777033-9 (Version None)
Quarter: 2005Q3

REPORT INFORMATION
  Report Type: 
  Country: None (occurrence: None)
  Receive Date: 20050923
  Receipt Date: 20050913
  Transmission Date: 20060218
  Serious: Yes (Hospitalization)
  Sender: FDA-Public Use
  Company Number: KR-BRISTOL-MYERS SQUIBB COMPANY-13112750

PATIENT
  Age: 59 Year
  Sex: Male

DRUGS (4)
  1. CETUXIMAB [Suspect]
     Indication: COLORECTAL CANCER METASTATIC
     Dosage: MOST RECENT TX ON 29-AUG-05.  PT HAD REC'D 7 INFUSIONS TO DATE.
     Route: 041
     Dates: start: 20050716
  2. IRINOTECAN HCL [Suspect]
     Indication: COLORECTAL CANCER METASTATIC
     Dosage: MOST RECENT TX ON 22-AUG-05. PT HAD REC'D 3 INFUSIONS TO DATE.
     Route: 042
     Dates: start: 20050716
  3. LEUCOVORIN CALCIUM [Suspect]
     Indication: COLORECTAL CANCER METASTATIC
     Dosage: MOST RECENT TX ON 22-AUG-05. PT HAD REC'D 3 INFUSIONS TO DATE.
     Route: 042
     Dates: start: 20050716
  4. FLUOROURACIL [Suspect]
     Indication: COLORECTAL CANCER METASTATIC
     Dosage: MOST RECENT TX ON 22-AUG-05. PT HAD REC'D 3 INFUSIONS TO DATE.
     Route: 042
     Dates: start: 20050716

REACTIONS (1)
  - COLITIS [None]
